FAERS Safety Report 9366038 (Version 1)
Quarter: 2013Q2

REPORT INFORMATION
  Report Type: Spontaneous
  Country: US (occurrence: US)
  Receive Date: 20130625
  Receipt Date: 20130625
  Transmission Date: 20140414
  Serious: Yes (Death)
  Sender: FDA-Public Use
  Company Number: US-COVIDIEN/TYCO HEALTHCARE/MALLINCKRODT-T201301095

PATIENT
  Age: 42 Year
  Sex: Male
  Weight: 133.33 kg

DRUGS (11)
  1. TRAMADOL [Suspect]
     Indication: ARTHRITIS
     Dosage: 50 MG, BID
     Route: 048
     Dates: start: 20130103, end: 20130107
  2. TRAMADOL [Suspect]
     Indication: CARPAL TUNNEL SYNDROME
  3. HYDROCODONE/ACETAMINOPHEN [Suspect]
     Indication: CHEST PAIN
     Dosage: 10/500 MG, TABLET, Q 12 HR
     Route: 048
     Dates: start: 20130103, end: 20130107
  4. HYDROCODONE/ACETAMINOPHEN [Suspect]
     Indication: BACK PAIN
  5. LEVOTHYROXIN [Concomitant]
     Indication: HYPOTHYROIDISM
     Dosage: UNK
  6. ALBUTEROL                          /00139501/ [Concomitant]
     Indication: CHRONIC OBSTRUCTIVE PULMONARY DISEASE
     Dosage: UNK
  7. KLONOPIN [Concomitant]
     Indication: ANXIETY
     Dosage: UNK
  8. ZOCOR [Concomitant]
     Indication: BLOOD CHOLESTEROL INCREASED
     Dosage: UNK
  9. LISINOPRIL [Concomitant]
     Indication: HYPERTENSION
     Dosage: UNK
  10. TRAZODONE [Concomitant]
     Indication: DEPRESSION
     Dosage: UNK
  11. SYMBICORT [Concomitant]
     Indication: CHRONIC OBSTRUCTIVE PULMONARY DISEASE
     Dosage: UNK

REACTIONS (2)
  - Abdominal pain upper [Recovered/Resolved]
  - Product odour abnormal [Unknown]
